FAERS Safety Report 9265526 (Version 1)
Quarter: 2013Q2

REPORT INFORMATION
  Report Type: Spontaneous
  Country: US (occurrence: US)
  Receive Date: 20130501
  Receipt Date: 20130501
  Transmission Date: 20140414
  Serious: Yes (Hospitalization, Other)
  Sender: FDA-Public Use
  Company Number: US-BAYER-2013-052304

PATIENT
  Age: 28 Year
  Sex: Female
  Weight: 95.69 kg

DRUGS (14)
  1. BEYAZ [Suspect]
  2. DICLOFENAC [Concomitant]
     Dosage: 75 MG, BID, 150 Q DAY FOR 3 DAYS
     Route: 048
     Dates: start: 20110517
  3. DICLOFENAC [Concomitant]
     Dosage: 75 MG, BID, 150 Q DAY FOR 3 DAYS
     Dates: start: 20110802
  4. IMITREX [Concomitant]
     Indication: HEADACHE
     Dosage: 100 MG, AT ONSET OF HEADACHE, MAY REPEAT [TIMES] 1 IN A 24-HOUR
     Route: 048
     Dates: start: 20110517, end: 20111213
  5. PHENERGAN [Concomitant]
     Indication: NAUSEA
     Dosage: 10 MG Q DAY, 25 MG EVERY 6 TO 8 HOURS PRN
     Route: 048
     Dates: start: 20110517
  6. PHENERGAN [Concomitant]
     Indication: VOMITING
  7. TRAMADOL [Concomitant]
     Indication: MIGRAINE
     Dosage: 50 MG, EVERY 6 HOURS TO TWICE A DAY PRN
     Route: 048
     Dates: start: 20110517, end: 20111122
  8. ZANAFLEX [Concomitant]
     Indication: TEMPOROMANDIBULAR JOINT SYNDROME
     Dosage: 4 MG, BID
     Route: 048
     Dates: start: 20110517
  9. ZANAFLEX [Concomitant]
     Indication: MUSCLE SPASMS
  10. ZANTAC [Concomitant]
     Dosage: 150 BID
     Dates: start: 20110517
  11. VITAMIN B12 [Concomitant]
     Dosage: ONE DAILY
  12. VITAMIN D [Concomitant]
     Dosage: 1 DAILY
  13. NASONEX [Concomitant]
     Dosage: 1 SPRAY BID PRN
  14. BACTRIM DS [Concomitant]
     Dosage: 1 DF, BID FOR 7 DAYS

REACTIONS (3)
  - Pelvic venous thrombosis [Recovered/Resolved]
  - Deep vein thrombosis [Recovered/Resolved]
  - Cholecystitis [None]
